FAERS Safety Report 6259693-9 (Version None)
Quarter: 2009Q3

REPORT INFORMATION
  Report Type: 
  Country: None (occurrence: None)
  Receive Date: 20090706
  Receipt Date: 20090706
  Transmission Date: 20100115
  Serious: No
  Sender: FDA-Public Use
  Company Number: None

PATIENT
  Age: 68 Year
  Sex: Female
  Weight: 67.1324 kg

DRUGS (1)
  1. ARMOUR THYROID 30 MG. FOREST PHARMACEUTICALS [Suspect]
     Indication: HYPOTHYROIDISM
     Dosage: 1 TABLET 1 PER DAY
     Dates: start: 20090427, end: 20090705

REACTIONS (5)
  - ALOPECIA [None]
  - FATIGUE [None]
  - PRODUCT SUBSTITUTION ISSUE [None]
  - PRODUCT TAMPERING [None]
  - PRODUCT TASTE ABNORMAL [None]
